FAERS Safety Report 6199368-8 (Version None)
Quarter: 2009Q2

REPORT INFORMATION
  Report Type: 
  Country: None (occurrence: None)
  Receive Date: 20090519
  Receipt Date: 20090511
  Transmission Date: 20091009
  Serious: Yes (Hospitalization)
  Sender: FDA-Public Use
  Company Number: IPS_01629_2009

PATIENT
  Sex: Male
  Weight: 65.7716 kg

DRUGS (15)
  1. APOKYN [Suspect]
     Indication: PARKINSON'S DISEASE
     Dosage: 0.3 ML PRN, [TYPICALLY ABOUT A ^COUPLE ^ OF TIMES EACH WEEK] SUBCUTANEOUS)
     Route: 058
     Dates: start: 20080101
  2. APOKYN [Suspect]
  3. CARBIDOPA AND LEVODOPA [Concomitant]
  4. COMTAN [Concomitant]
  5. ROPINIROLE [Concomitant]
  6. AMANTADINE HCL [Concomitant]
  7. SERTRALINE HCL [Concomitant]
  8. AZILECT [Concomitant]
  9. LEVOTHYROXINE [Concomitant]
  10. FLOMAX [Concomitant]
  11. DETROL [Concomitant]
  12. LIPITOR [Concomitant]
  13. ASPIRIN [Concomitant]
  14. CALCIUM [Concomitant]
  15. COLACE [Concomitant]

REACTIONS (4)
  - DEPRESSION [None]
  - HYPERHIDROSIS [None]
  - INFLUENZA LIKE ILLNESS [None]
  - THYROID DISORDER [None]
